FAERS Safety Report 25347402 (Version 1)
Quarter: 2025Q2

REPORT INFORMATION
  Report Type: Spontaneous
  Country: DE (occurrence: DE)
  Receive Date: 20250522
  Receipt Date: 20250522
  Transmission Date: 20250716
  Serious: Yes (Death, Other)
  Sender: FRESENIUS KABI
  Company Number: None

PATIENT
  Age: 75 Year
  Sex: Female
  Weight: 70 kg

DRUGS (1)
  1. PIPERACILLIN SODIUM\TAZOBACTAM SODIUM [Suspect]
     Active Substance: PIPERACILLIN SODIUM\TAZOBACTAM SODIUM
     Indication: Cholangitis infective
     Route: 042
     Dates: start: 20250424, end: 20250424

REACTIONS (4)
  - Anaphylactic reaction [Fatal]
  - Circulatory collapse [Fatal]
  - Vasoplegia syndrome [Fatal]
  - Hypoxia [Fatal]

NARRATIVE: CASE EVENT DATE: 20250424
